FAERS Safety Report 7070967-4 (Version None)
Quarter: 2010Q4

REPORT INFORMATION
  Report Type: 
  Country: None (occurrence: None)
  Receive Date: 20101027
  Receipt Date: 20101027
  Transmission Date: 20110411
  Serious: Yes (Other)
  Sender: FDA-Public Use
  Company Number: None

PATIENT
  Age: 61 Year
  Sex: Male
  Weight: 107.0489 kg

DRUGS (3)
  1. AVELOX [Suspect]
     Indication: ASTHMA
     Dosage: 1 TABLET ONE A DAY PO
     Route: 048
     Dates: start: 20101026, end: 20101105
  2. AVELOX [Suspect]
     Indication: BRONCHITIS
     Dosage: 1 TABLET ONE A DAY PO
     Route: 048
     Dates: start: 20101026, end: 20101105
  3. AVELOX [Suspect]
     Indication: SINUSITIS
     Dosage: 1 TABLET ONE A DAY PO
     Route: 048
     Dates: start: 20101026, end: 20101105

REACTIONS (5)
  - ABDOMINAL PAIN [None]
  - HEADACHE [None]
  - HYPERHIDROSIS [None]
  - NERVOUSNESS [None]
  - VISION BLURRED [None]
